FAERS Safety Report 7163652-1 (Version None)
Quarter: 2010Q4

REPORT INFORMATION
  Report Type: 
  Country: None (occurrence: None)
  Receive Date: 20101215
  Receipt Date: 20100524
  Transmission Date: 20110411
  Serious: Yes (Other)
  Sender: FDA-Public Use
  Company Number: BR-PFIZER INC-2010065205

PATIENT
  Age: 31 Year
  Sex: Male
  Weight: 70 kg

DRUGS (3)
  1. LYRICA [Suspect]
     Dosage: 150 MG, 2X/DAY (EVERY 12 HOURS)
     Route: 048
     Dates: start: 20090701
  2. LYRICA [Interacting]
     Dosage: 75 MG IN THE MORNING AND 150 MG AT NIGHT
     Route: 048
     Dates: start: 20100524
  3. ALCOHOL [Interacting]
     Dosage: UNK

REACTIONS (6)
  - ALCOHOL INTERACTION [None]
  - AMNESIA [None]
  - BURSITIS [None]
  - CONFUSIONAL STATE [None]
  - DRUG INEFFECTIVE [None]
  - SOMNOLENCE [None]
